FAERS Safety Report 7254172-4 (Version None)
Quarter: 2011Q1

REPORT INFORMATION
  Report Type: 
  Country: None (occurrence: None)
  Receive Date: 20110129
  Receipt Date: 20100126
  Transmission Date: 20110831
  Serious: Yes (Other)
  Sender: FDA-Public Use
  Company Number: US-ABBOTT-10P-163-0622177-00

PATIENT
  Sex: Female
  Weight: 68.1 kg

DRUGS (3)
  1. PREDNISONE [Concomitant]
     Indication: PSORIATIC ARTHROPATHY
     Dosage: 7MG DAILY
  2. HUMIRA [Suspect]
     Indication: PSORIATIC ARTHROPATHY
     Dates: start: 20090401, end: 20090901
  3. TOPROL-XL [Concomitant]
     Indication: ANXIETY
     Dosage: 1 AND 1/2 PILLS IN ONE DAY

REACTIONS (5)
  - BRONCHITIS [None]
  - JOINT SWELLING [None]
  - PAIN [None]
  - ARTHRALGIA [None]
  - PSORIASIS [None]
